FAERS Safety Report 9351698 (Version 1)
Quarter: 2013Q2

REPORT INFORMATION
  Report Type: Spontaneous
  Country: US (occurrence: US)
  Receive Date: 20130617
  Receipt Date: 20130617
  Transmission Date: 20140414
  Serious: No
  Sender: FDA-Public Use
  Company Number: US-UPSHER-SMITH LABORATORIES, INC.-12001435

PATIENT
  Age: 66 Year
  Sex: Male

DRUGS (4)
  1. PACERONE (USL) [Suspect]
     Indication: CORONARY ARTERY BYPASS
     Dosage: 200 MG, BID
     Route: 048
     Dates: start: 20120525, end: 20120603
  2. METFORMIN [Concomitant]
     Dosage: UNK
  3. TRAMADOL [Concomitant]
     Dosage: UNK
  4. ASPIRIN [Concomitant]
     Dosage: UNK

REACTIONS (3)
  - Optic neuropathy [Not Recovered/Not Resolved]
  - Neuropathy peripheral [Not Recovered/Not Resolved]
  - Paraesthesia [Not Recovered/Not Resolved]
